FAERS Safety Report 18339829 (Version 1)
Quarter: 2020Q4

REPORT INFORMATION
  Report Type: Report from Study
  Country: CA (occurrence: CA)
  Receive Date: 20201002
  Receipt Date: 20201002
  Transmission Date: 20210113
  Serious: Yes (Other)
  Sender: FDA-Public Use
  Company Number: PHHY2017CA131563

PATIENT
  Age: 3 Year
  Sex: Female

DRUGS (23)
  1. ILARIS [Suspect]
     Active Substance: CANAKINUMAB
     Dosage: 82.5 MG, Q4W
     Route: 058
     Dates: start: 20190215
  2. ILARIS [Suspect]
     Active Substance: CANAKINUMAB
     Dosage: 150 MG, Q4W
     Route: 058
     Dates: start: 20191220
  3. ILARIS [Suspect]
     Active Substance: CANAKINUMAB
     Dosage: 150 MG, Q4W
     Route: 058
     Dates: start: 20200213
  4. ILARIS [Suspect]
     Active Substance: CANAKINUMAB
     Dosage: 150 MG, Q4W
     Route: 058
     Dates: start: 20200827
  5. ILARIS [Suspect]
     Active Substance: CANAKINUMAB
     Indication: CRYOPYRIN ASSOCIATED PERIODIC SYNDROME
     Dosage: 150 MG, Q4W
     Route: 058
     Dates: start: 20170515
  6. ILARIS [Suspect]
     Active Substance: CANAKINUMAB
     Dosage: UNK
     Route: 065
     Dates: start: 20171027
  7. ILARIS [Suspect]
     Active Substance: CANAKINUMAB
     Dosage: 60 MG, Q4W
     Route: 058
     Dates: start: 20180119
  8. ILARIS [Suspect]
     Active Substance: CANAKINUMAB
     Dosage: 60 OT, Q4W
     Route: 058
     Dates: start: 20180803
  9. ILARIS [Suspect]
     Active Substance: CANAKINUMAB
     Dosage: UNK
     Route: 058
     Dates: start: 20170901
  10. ILARIS [Suspect]
     Active Substance: CANAKINUMAB
     Dosage: 60 OT, Q4W
     Route: 058
     Dates: start: 20181123
  11. ILARIS [Suspect]
     Active Substance: CANAKINUMAB
     Dosage: 82 OT, Q4W
     Route: 058
     Dates: start: 20190118
  12. ILARIS [Suspect]
     Active Substance: CANAKINUMAB
     Dosage: 150 MG, Q4W
     Route: 058
     Dates: start: 20190801
  13. ILARIS [Suspect]
     Active Substance: CANAKINUMAB
     Dosage: UNK
     Route: 058
     Dates: start: 20170804
  14. ILARIS [Suspect]
     Active Substance: CANAKINUMAB
     Dosage: UNK
     Route: 065
     Dates: start: 20170929
  15. ILARIS [Suspect]
     Active Substance: CANAKINUMAB
     Dosage: 60 OT, Q4W
     Route: 058
     Dates: start: 20181221
  16. ILARIS [Suspect]
     Active Substance: CANAKINUMAB
     Dosage: UNK
     Route: 058
     Dates: start: 20170707
  17. ILARIS [Suspect]
     Active Substance: CANAKINUMAB
     Dosage: 60 OT, Q4W
     Route: 058
     Dates: start: 20180511
  18. ILARIS [Suspect]
     Active Substance: CANAKINUMAB
     Dosage: UNK
     Route: 065
     Dates: start: 20171222
  19. ILARIS [Suspect]
     Active Substance: CANAKINUMAB
     Dosage: 60 OT, Q4W
     Route: 058
     Dates: start: 20180413
  20. COLCHICINE. [Concomitant]
     Active Substance: COLCHICINE
     Indication: PRODUCT USED FOR UNKNOWN INDICATION
     Dosage: UNK
     Route: 065
     Dates: end: 201812
  21. ILARIS [Suspect]
     Active Substance: CANAKINUMAB
     Dosage: UNK
     Route: 065
     Dates: start: 20171124
  22. ILARIS [Suspect]
     Active Substance: CANAKINUMAB
     Dosage: 60 OT, Q4W
     Route: 058
     Dates: start: 20180608
  23. ILARIS [Suspect]
     Active Substance: CANAKINUMAB
     Dosage: 82 MG, Q4W
     Route: 058
     Dates: start: 20190705

REACTIONS (17)
  - Condition aggravated [Unknown]
  - Cryopyrin associated periodic syndrome [Unknown]
  - Blood pressure decreased [Not Recovered/Not Resolved]
  - Asthenia [Unknown]
  - Drug intolerance [Unknown]
  - Familial mediterranean fever [Unknown]
  - Muckle-Wells syndrome [Unknown]
  - Amyloidosis [Unknown]
  - Arthralgia [Unknown]
  - Malaise [Unknown]
  - Respiratory rate decreased [Unknown]
  - Heart rate decreased [Unknown]
  - Diarrhoea [Unknown]
  - Drug ineffective [Unknown]
  - Pyrexia [Unknown]
  - Lactose intolerance [Unknown]
  - Abdominal pain [Not Recovered/Not Resolved]

NARRATIVE: CASE EVENT DATE: 20170901
